FAERS Safety Report 24141189 (Version 1)
Quarter: 2024Q3

REPORT INFORMATION
  Report Type: Spontaneous
  Country: AU (occurrence: AU)
  Receive Date: 20240726
  Receipt Date: 20240726
  Transmission Date: 20241017
  Serious: Yes (Other)
  Sender: CHEPLAPHARM
  Company Number: AU-CHEPLA-2024009325

PATIENT
  Sex: Male

DRUGS (4)
  1. OLANZAPINE PAMOATE [Suspect]
     Active Substance: OLANZAPINE PAMOATE
     Indication: Schizoaffective disorder
     Dosage: THE FOLLOWING TUESDAY (16TH JULY), THE PATIENT DID NOT PICK-UP HIS SUBOXONE DOSE.
     Dates: start: 20240715
  2. CANNABIS SATIVA SUBSP. INDICA TOP [Concomitant]
     Active Substance: CANNABIS SATIVA SUBSP. INDICA TOP
  3. METHAMPHETAMINE [Concomitant]
     Active Substance: METHAMPHETAMINE
  4. Depot paliperidone [Concomitant]
     Dosage: HIS LAST DOSE OF PALIPERIDONE WAS INJECTED 6-DAYS BEFORE ZYPREXA RELPREVV WAS INITIATED.

REACTIONS (2)
  - Delirium [Not Recovered/Not Resolved]
  - Confusional state [Not Recovered/Not Resolved]
